FAERS Safety Report 22136619 (Version 1)
Quarter: 2023Q1

REPORT INFORMATION
  Report Type: Report from Study
  Country: BR (occurrence: BR)
  Receive Date: 20230324
  Receipt Date: 20230324
  Transmission Date: 20230418
  Serious: Yes (Other)
  Sender: FDA-Public Use
  Company Number: BR-JNJFOC-20230353785

PATIENT
  Age: 29 Year
  Sex: Male
  Weight: 71 kg

DRUGS (2)
  1. REMICADE [Suspect]
     Active Substance: INFLIXIMAB
     Indication: Crohn^s disease
     Route: 041
     Dates: start: 20201119
  2. AZATHIOPRINE [Concomitant]
     Active Substance: AZATHIOPRINE

REACTIONS (2)
  - Crohn^s disease [Recovering/Resolving]
  - Suspected COVID-19 [Recovering/Resolving]

NARRATIVE: CASE EVENT DATE: 20230316
